FAERS Safety Report 24979589 (Version 1)
Quarter: 2025Q1

REPORT INFORMATION
  Report Type: Spontaneous
  Country: FR (occurrence: FR)
  Receive Date: 20250218
  Receipt Date: 20250218
  Transmission Date: 20250409
  Serious: Yes (Other)
  Sender: RANBAXY
  Company Number: FR-AFSSAPS-AN2024001737

PATIENT
  Age: 68 Year
  Sex: Male

DRUGS (5)
  1. CEFTRIAXONE [Suspect]
     Active Substance: CEFTRIAXONE
     Indication: Antibiotic therapy
     Route: 040
     Dates: start: 20241121, end: 20241126
  2. NOREPINEPHRINE BITARTRATE [Suspect]
     Active Substance: NOREPINEPHRINE BITARTRATE
     Indication: Hypotension
     Route: 040
     Dates: start: 20241120, end: 20241124
  3. MIDAZOLAM [Suspect]
     Active Substance: MIDAZOLAM
     Indication: Sedation
     Route: 040
     Dates: start: 20241120, end: 20241126
  4. HYDROCORTISONE [Suspect]
     Active Substance: HYDROCORTISONE
     Indication: Lung disorder
     Dosage: 200 MILLIGRAM, DAILY
     Route: 040
     Dates: start: 202211, end: 202411
  5. FENTANYL [Suspect]
     Active Substance: FENTANYL
     Indication: Sedation
     Route: 040
     Dates: start: 20241120, end: 20241126

REACTIONS (1)
  - Hepatic cytolysis [Recovering/Resolving]

NARRATIVE: CASE EVENT DATE: 20241127
